FAERS Safety Report 8318925-3 (Version None)
Quarter: 2012Q2

REPORT INFORMATION
  Report Type: 
  Country: None (occurrence: None)
  Receive Date: 20120427
  Receipt Date: 20120419
  Transmission Date: 20120825
  Serious: Yes (Other)
  Sender: FDA-Public Use
  Company Number: US-JNJFOC-20120409344

PATIENT
  Sex: Female
  Weight: 71.67 kg

DRUGS (6)
  1. METOPROLOL TARTRATE [Concomitant]
     Route: 048
  2. DIOVAN [Concomitant]
     Indication: HYPERTENSION
     Route: 048
  3. PREVACID [Concomitant]
     Indication: GASTRIC DISORDER
     Route: 048
  4. PAXIL [Concomitant]
     Indication: ANXIETY
     Route: 048
  5. XANAX [Concomitant]
     Indication: NERVOUSNESS
     Route: 048
  6. XARELTO [Suspect]
     Indication: ATRIAL FIBRILLATION
     Route: 048
     Dates: start: 20120301

REACTIONS (9)
  - TREMOR [None]
  - ASTHENIA [None]
  - NAUSEA [None]
  - URINARY TRACT INFECTION [None]
  - DIZZINESS [None]
  - WEIGHT INCREASED [None]
  - RED BLOOD CELL COUNT INCREASED [None]
  - SYNCOPE [None]
  - ARTHRITIS [None]
